FAERS Safety Report 7400671-1 (Version None)
Quarter: 2011Q2

REPORT INFORMATION
  Report Type: 
  Country: None (occurrence: None)
  Receive Date: 20110407
  Receipt Date: 20110401
  Transmission Date: 20111010
  Serious: Yes (Hospitalization)
  Sender: FDA-Public Use
  Company Number: A0773283A

PATIENT
  Age: 37 Year
  Sex: Female
  Weight: 86.4 kg

DRUGS (7)
  1. LISINOPRIL [Concomitant]
  2. CYMBALTA [Concomitant]
  3. DETROL [Concomitant]
  4. AVANDIA [Suspect]
     Route: 048
     Dates: start: 20010101, end: 20070401
  5. LIPITOR [Concomitant]
  6. GABAPENTIN [Concomitant]
  7. INSULIN [Concomitant]

REACTIONS (7)
  - DEPRESSION [None]
  - ANXIETY [None]
  - MYOCARDIAL INFARCTION [None]
  - TRANSIENT ISCHAEMIC ATTACK [None]
  - PERONEAL NERVE PALSY [None]
  - PANIC ATTACK [None]
  - ACUTE CORONARY SYNDROME [None]
